FAERS Safety Report 15953961 (Version 1)
Quarter: 2019Q1

REPORT INFORMATION
  Report Type: Spontaneous
  Country: ES (occurrence: ES)
  Receive Date: 20190212
  Receipt Date: 20190212
  Transmission Date: 20190417
  Serious: Yes (Other)
  Sender: FDA-Public Use
  Company Number: ES-MYLANLABS-2019M1011753

PATIENT
  Age: 69 Year
  Sex: Female

DRUGS (2)
  1. GEMFIBROZIL. [Suspect]
     Active Substance: GEMFIBROZIL
     Indication: HYPERCHOLESTEROLAEMIA
     Dosage: 1200 MG, DAILY (CHRONIC TREATMENT)
  2. CAPTOPRIL. [Concomitant]
     Active Substance: CAPTOPRIL
     Indication: BLOOD PRESSURE INCREASED
     Dosage: UNK (CHRONIC TREATMENT)

REACTIONS (2)
  - Transaminases increased [Recovering/Resolving]
  - Hepatitis [Recovering/Resolving]
